FAERS Safety Report 24376947 (Version 1)
Quarter: 2024Q3

REPORT INFORMATION
  Report Type: Spontaneous
  Country: US (occurrence: US)
  Receive Date: 20240930
  Receipt Date: 20240930
  Transmission Date: 20241016
  Serious: Yes (Other)
  Sender: MERCK
  Company Number: US-009507513-2409USA009320

PATIENT
  Age: 42 Year
  Sex: Female

DRUGS (1)
  1. KEYTRUDA [Suspect]
     Active Substance: PEMBROLIZUMAB
     Indication: Astrocytoma
     Dosage: UNK

REACTIONS (2)
  - Pneumonitis [Unknown]
  - Granuloma [Unknown]
